FAERS Safety Report 7537257-4 (Version None)
Quarter: 2011Q2

REPORT INFORMATION
  Report Type: 
  Country: None (occurrence: None)
  Receive Date: 20110609
  Receipt Date: 20110606
  Transmission Date: 20111010
  Serious: No
  Sender: FDA-Public Use
  Company Number: US-PFIZER INC-2011124758

PATIENT
  Sex: Female

DRUGS (4)
  1. ADVAIR DISKUS 100/50 [Suspect]
  2. PERCOCET [Suspect]
  3. NEURONTIN [Suspect]
     Dosage: UNK
     Dates: start: 19910101
  4. VICODIN [Suspect]

REACTIONS (1)
  - HYPERSENSITIVITY [None]
